FAERS Safety Report 7631317-5 (Version None)
Quarter: 2011Q3

REPORT INFORMATION
  Report Type: 
  Country: None (occurrence: None)
  Receive Date: 20110725
  Receipt Date: 20110715
  Transmission Date: 20111222
  Serious: Yes (Other)
  Sender: FDA-Public Use
  Company Number: US-BAYER-2011-009748

PATIENT
  Age: 54 Year
  Sex: Male

DRUGS (31)
  1. METOPROLOL TARTRATE [Concomitant]
  2. HEPARIN [Concomitant]
  3. MIRALAX [Concomitant]
  4. LORATADINE [Concomitant]
  5. DOXAZOSIN MESYLATE [Concomitant]
  6. OXYCODONE HCL [Concomitant]
  7. ASPIRIN [Concomitant]
  8. COMBIVENT [Concomitant]
  9. DULCOLAX [Concomitant]
  10. FLUTICASONE [Concomitant]
  11. LEVITRA [Concomitant]
  12. NEXAVAR [Suspect]
     Indication: SOFT TISSUE NEOPLASM
     Dosage: 400 MG, BID
     Route: 048
     Dates: start: 20110116
  13. LORAZEPAM [Concomitant]
  14. OMEPRAZOLE [Concomitant]
  15. SENNA [Concomitant]
  16. LISINOPRIL [Concomitant]
  17. SPIRIVA [Concomitant]
  18. POTASSIUM [Concomitant]
  19. REGLAN [Concomitant]
  20. CALCIUM W/VITAMIN D [CALCIUM CARBONATE,COLECALCIFEROL] [Concomitant]
  21. ALBUTEROL SULFATE AUTOHALER [Concomitant]
  22. MELOXICAM [Concomitant]
  23. VIAGRA [Concomitant]
  24. LASIX [Concomitant]
  25. PROVENTIL [Concomitant]
  26. SODIUM CHLORIDE [Concomitant]
  27. ADVAIR DISKUS 100/50 [Concomitant]
  28. HYDROCODONE BITARTRATE AND ACETAMINOPHEN [Concomitant]
  29. GLUCAGON [Concomitant]
  30. NOVOLIN [INSULIN] [Concomitant]
  31. MOMETASONE FUROATE [Concomitant]

REACTIONS (7)
  - FATIGUE [None]
  - RASH [None]
  - ERECTILE DYSFUNCTION [None]
  - SKIN EXFOLIATION [None]
  - URINARY RETENTION [None]
  - DIARRHOEA [None]
  - VOMITING [None]
